FAERS Safety Report 11329109 (Version 3)
Quarter: 2015Q3

REPORT INFORMATION
  Report Type: Report from Study
  Country: BR (occurrence: BR)
  Receive Date: 20150803
  Receipt Date: 20150908
  Transmission Date: 20151125
  Serious: Yes (Other)
  Sender: FDA-Public Use
  Company Number: PHHY2015BR089716

PATIENT
  Sex: Female
  Weight: 89 kg

DRUGS (1)
  1. ACLASTA [Suspect]
     Active Substance: ZOLEDRONIC ACID
     Indication: OSTEOPOROSIS
     Dosage: 5 MG, Q12MO
     Route: 065
     Dates: start: 2014

REACTIONS (5)
  - Cataract [Unknown]
  - Pneumonia [Unknown]
  - Diplopia [Unknown]
  - Asthma [Unknown]
  - Visual impairment [Unknown]
